FAERS Safety Report 16943600 (Version 3)
Quarter: 2021Q4

REPORT INFORMATION
  Report Type: Spontaneous
  Country: US (occurrence: US)
  Receive Date: 20191022
  Receipt Date: 20211210
  Transmission Date: 20220303
  Serious: Yes (Death, Life-Threatening, Other)
  Sender: FDA-Public Use
  Company Number: US-CIPLA LTD.-2019US06931

PATIENT

DRUGS (8)
  1. IRINOTECAN [Suspect]
     Active Substance: IRINOTECAN
     Indication: Gastrooesophageal cancer
     Dosage: UNK, 3 CYCLES
     Route: 065
  2. EPIRUBICIN [Suspect]
     Active Substance: EPIRUBICIN
     Indication: Gastrooesophageal cancer
     Dosage: UNK, CYCLICAL, NEOADJUVANT CHEMOTHERAPY
     Route: 065
  3. DOCETAXEL [Suspect]
     Active Substance: DOCETAXEL
     Indication: Gastrooesophageal cancer
     Dosage: UNK, 3 CYCLES
     Route: 065
  4. BEVACIZUMAB [Suspect]
     Active Substance: BEVACIZUMAB
     Indication: Gastrooesophageal cancer
     Dosage: UNK, CYCLICAL, NEOADJUVANT CHEMOTHERAPY
     Route: 065
  5. BEVACIZUMAB [Suspect]
     Active Substance: BEVACIZUMAB
     Dosage: UNK, 3 CYCLES
     Route: 065
  6. CAPECITABINE [Suspect]
     Active Substance: CAPECITABINE
     Indication: Gastrooesophageal cancer
     Dosage: UNK, CYCLICAL, NEOADJUVANT CHEMOTHERAPY
     Route: 065
  7. CISPLATIN [Suspect]
     Active Substance: CISPLATIN
     Indication: Gastrooesophageal cancer
     Dosage: UNK, CYCLICAL, NEOADJUVANT CHEMOTHERAPY
     Route: 065
  8. DEXAMETHASONE [Suspect]
     Active Substance: DEXAMETHASONE
     Indication: Gastrooesophageal cancer
     Dosage: UNK, CYCLICAL, NEOADJUVANT CHEMOTHERAPY
     Route: 065

REACTIONS (10)
  - Cardio-respiratory arrest [Fatal]
  - Haemoptysis [Fatal]
  - Vascular pseudoaneurysm [Unknown]
  - Hypoxia [Unknown]
  - Thrombosis [Unknown]
  - Hypersensitivity [Unknown]
  - Idiosyncratic drug reaction [Unknown]
  - Pharyngeal ulceration [Recovered/Resolved]
  - Hypotension [Unknown]
  - Mucosal inflammation [Unknown]
